FAERS Safety Report 13393091 (Version 3)
Quarter: 2017Q2

REPORT INFORMATION
  Report Type: Spontaneous
  Country: BR (occurrence: BR)
  Receive Date: 20170331
  Receipt Date: 20170414
  Transmission Date: 20170830
  Serious: Yes (Hospitalization)
  Sender: FDA-Public Use
  Company Number: BR-BIOMARINAP-BR-2017-113375

PATIENT
  Sex: Female
  Weight: 16 kg

DRUGS (2)
  1. LORATADINE. [Concomitant]
     Active Substance: LORATADINE
     Indication: PREMEDICATION
     Dosage: 3.5 ML, UNK
  2. NAGLAZYME [Suspect]
     Active Substance: GALSULFASE
     Indication: MUCOPOLYSACCHARIDOSIS VI
     Dosage: 115 MG, QW
     Route: 042
     Dates: start: 20140318

REACTIONS (10)
  - Influenza [Recovered/Resolved]
  - Viral upper respiratory tract infection [Recovered/Resolved]
  - Apnoea [Unknown]
  - Pyrexia [Recovered/Resolved]
  - Sleep apnoea syndrome [Unknown]
  - Nasal discharge discolouration [Recovered/Resolved]
  - Anxiety [Unknown]
  - Malaise [Recovered/Resolved]
  - Dyspnoea [Recovered/Resolved]
  - Syncope [Recovered/Resolved]
